FAERS Safety Report 25851184 (Version 1)
Quarter: 2025Q3

REPORT INFORMATION
  Report Type: Spontaneous
  Country: US (occurrence: US)
  Receive Date: 20250926
  Receipt Date: 20250926
  Transmission Date: 20251021
  Serious: Yes (Hospitalization, Other)
  Sender: MYLAN
  Company Number: US-MYLANLABS-2025M1081003

PATIENT
  Age: 14 Year
  Sex: Male

DRUGS (20)
  1. ZOLEDRONIC ACID [Suspect]
     Active Substance: ZOLEDRONIC ACID
     Indication: Hypercalcaemia
  2. ZOLEDRONIC ACID [Suspect]
     Active Substance: ZOLEDRONIC ACID
  3. ZOLEDRONIC ACID [Suspect]
     Active Substance: ZOLEDRONIC ACID
     Route: 042
  4. ZOLEDRONIC ACID [Suspect]
     Active Substance: ZOLEDRONIC ACID
     Route: 042
  5. ZOLEDRONIC ACID [Suspect]
     Active Substance: ZOLEDRONIC ACID
  6. ZOLEDRONIC ACID [Suspect]
     Active Substance: ZOLEDRONIC ACID
  7. ZOLEDRONIC ACID [Suspect]
     Active Substance: ZOLEDRONIC ACID
     Route: 042
  8. ZOLEDRONIC ACID [Suspect]
     Active Substance: ZOLEDRONIC ACID
     Route: 042
  9. CALCITONIN SALMON [Suspect]
     Active Substance: CALCITONIN SALMON
     Indication: Hypercalcaemia
     Dosage: UNK, BID
  10. CALCITONIN SALMON [Suspect]
     Active Substance: CALCITONIN SALMON
     Dosage: UNK, BID
  11. CALCITONIN SALMON [Suspect]
     Active Substance: CALCITONIN SALMON
     Dosage: UNK, BID
     Route: 058
  12. CALCITONIN SALMON [Suspect]
     Active Substance: CALCITONIN SALMON
     Dosage: UNK, BID
     Route: 058
  13. CALCITONIN SALMON [Suspect]
     Active Substance: CALCITONIN SALMON
  14. CALCITONIN SALMON [Suspect]
     Active Substance: CALCITONIN SALMON
  15. CALCITONIN SALMON [Suspect]
     Active Substance: CALCITONIN SALMON
     Route: 058
  16. CALCITONIN SALMON [Suspect]
     Active Substance: CALCITONIN SALMON
     Route: 058
  17. DENOSUMAB [Concomitant]
     Active Substance: DENOSUMAB
     Indication: Granuloma
     Dosage: RECEIVED MULTIPLE DOSES OF DENOSUMAB OVER 4 YEARS FOR EVERY THREE MONTHS; AND MISSED THE LAST DOSE, Q3MONTHS
  18. DENOSUMAB [Concomitant]
     Active Substance: DENOSUMAB
     Indication: Jaw disorder
     Dosage: RECEIVED MULTIPLE DOSES OF DENOSUMAB OVER 4 YEARS FOR EVERY THREE MONTHS; AND MISSED THE LAST DOSE, Q3MONTHS
     Route: 042
  19. DENOSUMAB [Concomitant]
     Active Substance: DENOSUMAB
     Dosage: RECEIVED MULTIPLE DOSES OF DENOSUMAB OVER 4 YEARS FOR EVERY THREE MONTHS; AND MISSED THE LAST DOSE, Q3MONTHS
     Route: 042
  20. DENOSUMAB [Concomitant]
     Active Substance: DENOSUMAB
     Dosage: RECEIVED MULTIPLE DOSES OF DENOSUMAB OVER 4 YEARS FOR EVERY THREE MONTHS; AND MISSED THE LAST DOSE, Q3MONTHS

REACTIONS (4)
  - Drug ineffective [Unknown]
  - Pyrexia [Unknown]
  - Influenza like illness [Unknown]
  - Off label use [Unknown]
